FAERS Safety Report 23333084 (Version 9)
Quarter: 2025Q1

REPORT INFORMATION
  Report Type: Spontaneous
  Country: US (occurrence: US)
  Receive Date: 20231222
  Receipt Date: 20250320
  Transmission Date: 20250408
  Serious: No
  Sender: PFIZER
  Company Number: US-PFIZER INC-PV202300201467

PATIENT
  Age: 74 Year
  Sex: Female

DRUGS (2)
  1. IBRANCE [Suspect]
     Active Substance: PALBOCICLIB
     Indication: Breast cancer female
     Route: 048
  2. IBRANCE [Suspect]
     Active Substance: PALBOCICLIB
     Route: 048
     Dates: start: 20250206

REACTIONS (6)
  - Onychoclasis [Unknown]
  - Tumour marker increased [Unknown]
  - Carbohydrate antigen 27.29 increased [Unknown]
  - Fatigue [Unknown]
  - Full blood count decreased [Unknown]
  - Product dose omission issue [Unknown]
